FAERS Safety Report 21523859 (Version 1)
Quarter: 2022Q4

REPORT INFORMATION
  Report Type: Spontaneous
  Country: US (occurrence: US)
  Receive Date: 20221029
  Receipt Date: 20221029
  Transmission Date: 20230113
  Serious: Yes (Hospitalization, Other)
  Sender: FDA-Public Use
  Company Number: US-AMGEN-USASP2022181447

PATIENT
  Age: 77 Year
  Sex: Female
  Weight: 72.11 kg

DRUGS (3)
  1. PROLIA [Suspect]
     Active Substance: DENOSUMAB
     Indication: Product used for unknown indication
     Dosage: UNK, Q6MO
     Route: 065
  2. JAKAFI [Suspect]
     Active Substance: RUXOLITINIB
     Indication: Polycythaemia vera
     Dosage: 15 MILLIGRAM, BID
     Route: 048
     Dates: start: 20210609
  3. FOSAMAX [Suspect]
     Active Substance: ALENDRONATE SODIUM
     Indication: Product used for unknown indication
     Dosage: UNK
     Route: 065

REACTIONS (15)
  - Loss of consciousness [Unknown]
  - Mitral valve incompetence [Unknown]
  - Dehydration [Recovering/Resolving]
  - Fluid intake reduced [Unknown]
  - Arrhythmia [Unknown]
  - Feeling abnormal [Unknown]
  - Asthenia [Recovering/Resolving]
  - Fatigue [Recovering/Resolving]
  - Tooth extraction [Unknown]
  - Renal disorder [Unknown]
  - Cardiac hypertrophy [Unknown]
  - Hypoaesthesia [Unknown]
  - Myalgia [Unknown]
  - Bone pain [Unknown]
  - Anaemia [Unknown]
